FAERS Safety Report 6789048-X (Version None)
Quarter: 2010Q2

REPORT INFORMATION
  Report Type: 
  Country: None (occurrence: None)
  Receive Date: 20100623
  Receipt Date: 20080922
  Transmission Date: 20101027
  Serious: No
  Sender: FDA-Public Use
  Company Number: US-PFIZER INC-2008036514

PATIENT
  Age: 89 Year
  Sex: Male

DRUGS (2)
  1. XALATAN [Suspect]
     Dates: start: 20070801
  2. DRUG, UNSPECIFIED [Suspect]

REACTIONS (2)
  - MICTURITION URGENCY [None]
  - POLLAKIURIA [None]
